FAERS Safety Report 16270009 (Version 1)
Quarter: 2019Q2

REPORT INFORMATION
  Report Type: Spontaneous
  Country: DE (occurrence: DE)
  Receive Date: 20190503
  Receipt Date: 20190503
  Transmission Date: 20190711
  Serious: Yes (Other)
  Sender: FDA-Public Use
  Company Number: DE-PFIZER INC-2019185390

PATIENT
  Sex: Female

DRUGS (7)
  1. IBUPROFEN. [Suspect]
     Active Substance: IBUPROFEN
     Dosage: UNK
     Route: 065
  2. CIPRALEX [Interacting]
     Active Substance: ESCITALOPRAM OXALATE
     Indication: DEPRESSION
     Dosage: 5 MG, 1X/DAY
     Route: 065
  3. CIPRALEX [Interacting]
     Active Substance: ESCITALOPRAM OXALATE
     Dosage: 7.5 MG, ALTERNATE DAY
     Route: 065
  4. ESCITALOPRAM [Suspect]
     Active Substance: ESCITALOPRAM OXALATE
     Indication: BURNOUT SYNDROME
     Dosage: UNK
  5. ESCITALOPRAM [Suspect]
     Active Substance: ESCITALOPRAM OXALATE
     Indication: DEPRESSION
  6. CIPRALEX [Interacting]
     Active Substance: ESCITALOPRAM OXALATE
     Dosage: UNK
     Dates: start: 2007
  7. CIPRALEX [Interacting]
     Active Substance: ESCITALOPRAM OXALATE
     Indication: BURNOUT SYNDROME
     Dosage: 5 MG, UNK
     Route: 065

REACTIONS (9)
  - Panic attack [Unknown]
  - Drug interaction [Unknown]
  - Burnout syndrome [Unknown]
  - Palpitations [Unknown]
  - Apparent death [Unknown]
  - Hypertension [Unknown]
  - Stress [Unknown]
  - Hyperhidrosis [Unknown]
  - Restlessness [Unknown]

NARRATIVE: CASE EVENT DATE: 2017
